FAERS Safety Report 15969185 (Version 4)
Quarter: 2021Q4

REPORT INFORMATION
  Report Type: Spontaneous
  Country: US (occurrence: None)
  Receive Date: 20190215
  Receipt Date: 20211201
  Transmission Date: 20220303
  Serious: Yes (Hospitalization, Other)
  Sender: FDA-Public Use
  Company Number: 2018SF34927

PATIENT
  Age: 21374 Day
  Sex: Female
  Weight: 105.7 kg

DRUGS (36)
  1. PRILOSEC [Suspect]
     Active Substance: OMEPRAZOLE MAGNESIUM
     Indication: Gastrooesophageal reflux disease
     Route: 048
     Dates: start: 20000101, end: 20171231
  2. PRILOSEC [Suspect]
     Active Substance: OMEPRAZOLE MAGNESIUM
     Indication: Gastrooesophageal reflux disease
     Dosage: GENERIC
     Route: 048
     Dates: start: 20170917
  3. PRILOSEC [Suspect]
     Active Substance: OMEPRAZOLE MAGNESIUM
     Indication: Gastrooesophageal reflux disease
     Dosage: GENERIC
     Route: 065
     Dates: start: 2015, end: 2017
  4. PRILOSEC [Suspect]
     Active Substance: OMEPRAZOLE MAGNESIUM
     Indication: Gastrooesophageal reflux disease
     Dosage: GENERIC
     Route: 065
     Dates: start: 2015
  5. DORZOLAMIDE [Concomitant]
     Active Substance: DORZOLAMIDE
  6. LORATADINE [Concomitant]
     Active Substance: LORATADINE
  7. LEVOTHYROXINE [Concomitant]
     Active Substance: LEVOTHYROXINE
     Indication: Thyroid disorder
  8. WARFARIN [Concomitant]
     Active Substance: WARFARIN
  9. ROPINIROLE [Concomitant]
     Active Substance: ROPINIROLE
     Indication: Restless legs syndrome
     Dates: start: 1998
  10. SIMVASTATIN [Concomitant]
     Active Substance: SIMVASTATIN
     Indication: Blood cholesterol abnormal
     Dates: start: 1998
  11. LEVEMIR [Concomitant]
     Active Substance: INSULIN DETEMIR
  12. METOPROLOL [Concomitant]
     Active Substance: METOPROLOL
  13. CALCITRIOL [Concomitant]
     Active Substance: CALCITRIOL
  14. TOPIRAMATE [Concomitant]
     Active Substance: TOPIRAMATE
  15. LYRICA [Concomitant]
     Active Substance: PREGABALIN
  16. DIPYRIDAMOLE [Concomitant]
     Active Substance: DIPYRIDAMOLE
     Dates: start: 201807
  17. LEVETIRACETAM [Concomitant]
     Active Substance: LEVETIRACETAM
     Indication: Seizure
     Dates: start: 20170401
  18. HYDROCODONE [Concomitant]
     Active Substance: HYDROCODONE
     Indication: Pain
     Dates: start: 1981
  19. VITAMIN E [Concomitant]
     Active Substance: .ALPHA.-TOCOPHEROL
     Indication: Vitamin E
     Dates: start: 201804
  20. ASPIRIN [Concomitant]
     Active Substance: ASPIRIN
     Indication: Coagulopathy
     Dates: start: 1998
  21. BENADRYL [Concomitant]
     Active Substance: DIPHENHYDRAMINE HYDROCHLORIDE
     Indication: Pruritus
     Dates: start: 201804
  22. MAGNESIUM [Concomitant]
     Active Substance: MAGNESIUM
     Indication: Blood magnesium
     Dates: start: 201804
  23. PEPCID [Concomitant]
     Active Substance: FAMOTIDINE
     Dates: start: 1999, end: 2010
  24. TUMS [Concomitant]
     Active Substance: CALCIUM CARBONATE
     Dates: start: 1999, end: 2010
  25. HYDROCHLOROTHIAZIDE [Concomitant]
     Active Substance: HYDROCHLOROTHIAZIDE
     Dates: start: 1999, end: 2010
  26. POTASSIUM CITRATE [Concomitant]
     Active Substance: POTASSIUM CITRATE
     Dates: start: 1999, end: 2010
  27. REQUIP [Concomitant]
     Active Substance: ROPINIROLE HYDROCHLORIDE
     Dates: start: 1999, end: 2010
  28. COUMADIN [Concomitant]
     Active Substance: WARFARIN SODIUM
     Dates: start: 1999, end: 2010
  29. COZAAR [Concomitant]
     Active Substance: LOSARTAN POTASSIUM
     Dates: start: 1999, end: 2010
  30. CARDIZEM [Concomitant]
     Active Substance: DILTIAZEM HYDROCHLORIDE
     Dates: start: 1999, end: 2010
  31. ZANTAC [Concomitant]
     Active Substance: RANITIDINE HYDROCHLORIDE
     Dates: start: 1999, end: 2010
  32. SYNTHROID [Concomitant]
     Active Substance: LEVOTHYROXINE SODIUM
     Dates: start: 1999, end: 2010
  33. ACCUPRIL [Concomitant]
     Active Substance: QUINAPRIL HYDROCHLORIDE
     Dates: start: 1999, end: 2010
  34. AGGRENOX [Concomitant]
     Active Substance: ASPIRIN\DIPYRIDAMOLE
     Dates: start: 1999, end: 2010
  35. LASIX [Concomitant]
     Active Substance: FUROSEMIDE
     Dates: start: 1999, end: 2010
  36. LANTUS [Concomitant]
     Active Substance: INSULIN GLARGINE
     Dates: start: 1999, end: 2010

REACTIONS (6)
  - Chronic kidney disease [Not Recovered/Not Resolved]
  - Renal failure [Unknown]
  - Renal injury [Unknown]
  - Acute kidney injury [Unknown]
  - End stage renal disease [Unknown]
  - Gastrooesophageal reflux disease [Not Recovered/Not Resolved]

NARRATIVE: CASE EVENT DATE: 20070806
